FAERS Safety Report 9330069 (Version 1)
Quarter: 2013Q2

REPORT INFORMATION
  Report Type: Spontaneous
  Country: ES (occurrence: ES)
  Receive Date: 20130604
  Receipt Date: 20130604
  Transmission Date: 20140414
  Serious: Yes (Other)
  Sender: FDA-Public Use
  Company Number: ES-ABBOTT-13P-144-1096651-00

PATIENT
  Age: 62 Year
  Sex: Male

DRUGS (6)
  1. ZEMPLAR [Suspect]
     Indication: RENAL FAILURE CHRONIC
     Route: 048
     Dates: start: 201102, end: 20110419
  2. ALDOCUMAR [Concomitant]
     Indication: PRODUCT USED FOR UNKNOWN INDICATION
     Route: 048
  3. ARANESP [Concomitant]
     Indication: PRODUCT USED FOR UNKNOWN INDICATION
     Route: 058
  4. FERRO SANOL [Concomitant]
     Indication: ANAEMIA
     Route: 048
  5. SEGURIL [Concomitant]
     Indication: CARDIAC FAILURE
     Dosage: 10 MG DAILY
     Route: 048
  6. SYMBICORT [Concomitant]
     Indication: ASTHMA
     Dosage: 320 MG DAILY
     Route: 055

REACTIONS (1)
  - Acute febrile neutrophilic dermatosis [Recovered/Resolved]
